FAERS Safety Report 7318094-2 (Version None)
Quarter: 2011Q1

REPORT INFORMATION
  Report Type: 
  Country: None (occurrence: None)
  Receive Date: 20110228
  Receipt Date: 20110218
  Transmission Date: 20110831
  Serious: Yes (Hospitalization)
  Sender: FDA-Public Use
  Company Number: US-BIOGENIDEC-2011BI004099

PATIENT
  Age: 69 Year
  Sex: Female

DRUGS (2)
  1. AVONEX [Suspect]
     Indication: MULTIPLE SCLEROSIS
     Route: 030
     Dates: start: 19980201
  2. UNKNOWN MEDICATION [Concomitant]

REACTIONS (5)
  - FALL [None]
  - DRUG INTERACTION [None]
  - CONFUSIONAL STATE [None]
  - HEAD INJURY [None]
  - GAIT DISTURBANCE [None]
